FAERS Safety Report 6354696-8 (Version None)
Quarter: 2009Q3

REPORT INFORMATION
  Report Type: 
  Country: None (occurrence: None)
  Receive Date: 20090914
  Receipt Date: 20090903
  Transmission Date: 20100115
  Serious: Yes (Death)
  Sender: FDA-Public Use
  Company Number: DE-ALEXION-A200900721

PATIENT

DRUGS (2)
  1. SOLIRIS [Suspect]
     Indication: LYMPHOMA
     Route: 042
  2. CHEMOTHERAPEUTICS NOS [Concomitant]

REACTIONS (1)
  - CARDIAC DISORDER [None]
